FAERS Safety Report 8390188-2 (Version None)
Quarter: 2012Q2

REPORT INFORMATION
  Report Type: 
  Country: None (occurrence: None)
  Receive Date: 20120529
  Receipt Date: 20120525
  Transmission Date: 20120825
  Serious: Yes (Hospitalization, Other)
  Sender: FDA-Public Use
  Company Number: US-PFIZER INC-2011101873

PATIENT
  Sex: Female
  Weight: 63.946 kg

DRUGS (11)
  1. NEURONTIN [Concomitant]
     Dosage: 300 MG, 1X/DAY
  2. NEXIUM [Concomitant]
     Dosage: 40 MG, 1X/DAY
  3. AMBIEN [Concomitant]
     Dosage: 20 MG, 1X/DAY, AT BEDTIME
  4. LASIX [Concomitant]
     Indication: OEDEMA PERIPHERAL
     Dosage: UNK
  5. FOLIC ACID [Concomitant]
     Dosage: 1 MG, 1X/DAY
  6. ZOCOR [Concomitant]
     Dosage: 20 MG, 1X/DAY
  7. POTASSIUM CHLORIDE [Concomitant]
     Dosage: 20 MEQ, 2X/DAY
  8. ZOLOFT [Concomitant]
     Dosage: UNK
  9. CHANTIX [Suspect]
     Indication: SMOKING CESSATION THERAPY
     Dosage: UNK, DAILY
     Dates: start: 20090101
  10. PLAVIX [Concomitant]
     Dosage: 75 MG, 1X/DAY
  11. SYNTHROID [Concomitant]
     Dosage: 50 UG, UNK

REACTIONS (1)
  - ARTHROPATHY [None]
